FAERS Safety Report 14236523 (Version 2)
Quarter: 2017Q4

REPORT INFORMATION
  Report Type: Report from Study
  Country: GB (occurrence: GB)
  Receive Date: 20171129
  Receipt Date: 20171212
  Transmission Date: 20180321
  Serious: Yes (Hospitalization)
  Sender: FDA-Public Use
  Company Number: GB-EMD SERONO-E2B_80090567

PATIENT
  Age: 81 Year
  Sex: Male
  Weight: 70 kg

DRUGS (9)
  1. AVEENO COLLOIDAL OATMEAL [Concomitant]
     Indication: PALMAR-PLANTAR ERYTHRODYSAESTHESIA SYNDROME
     Dosage: 4 APPLICATION, 4X/DAY
     Dates: start: 20171018
  2. CHLORPHENAMINE [Concomitant]
     Active Substance: CHLORPHENIRAMINE MALEATE
     Indication: RASH
     Dosage: 16 MG, 1X/DAY
     Dates: start: 20171018
  3. BETAMETHASONE. [Concomitant]
     Active Substance: BETAMETHASONE
     Indication: RASH
     Dosage: 1 APPLICATION, 1X/DAY
     Dates: start: 20171018
  4. OMEPRAZOLE. [Concomitant]
     Active Substance: OMEPRAZOLE
     Indication: PROPHYLAXIS
     Dosage: 40 MG, 1X/DAY
     Dates: start: 20170918
  5. AVELUMAB [Suspect]
     Active Substance: AVELUMAB
     Indication: RENAL CELL CARCINOMA
     Dosage: 660 MG, EVERY 2 WEEKS
     Dates: start: 20170824, end: 20171129
  6. AMLODIPINE [Concomitant]
     Active Substance: AMLODIPINE BESYLATE
     Indication: HYPERTENSION
     Dosage: 10 MG, 1X/DAY
     Dates: start: 20170825
  7. CODEINE [Concomitant]
     Active Substance: CODEINE
     Indication: HEADACHE
     Dosage: 30 MG, 4X/DAY
     Dates: start: 20170824
  8. PARACETAMOL [Concomitant]
     Active Substance: ACETAMINOPHEN
     Indication: HEADACHE
     Dosage: 1000 MG, 4X/DAY
     Dates: start: 20170819
  9. INLYTA [Suspect]
     Active Substance: AXITINIB
     Indication: RENAL CELL CARCINOMA
     Dosage: 5 MG, 2X/DAY, CONTINUOUS
     Dates: start: 20170824

REACTIONS (1)
  - Arthritis [Recovered/Resolved]

NARRATIVE: CASE EVENT DATE: 20171120
